FAERS Safety Report 17711317 (Version 4)
Quarter: 2022Q1

REPORT INFORMATION
  Report Type: Spontaneous
  Country: US (occurrence: US)
  Receive Date: 20200427
  Receipt Date: 20220128
  Transmission Date: 20220423
  Serious: Yes (Other)
  Sender: FDA-Public Use
  Company Number: US-PFIZER INC-2020166654

PATIENT
  Age: 59 Year
  Sex: Female

DRUGS (1)
  1. PREGABALIN [Suspect]
     Active Substance: PREGABALIN
     Dosage: UNK
     Dates: end: 202109

REACTIONS (7)
  - Myocardial infarction [Unknown]
  - Dysphemia [Recovered/Resolved]
  - Palpitations [Recovered/Resolved]
  - Speech disorder [Recovered/Resolved]
  - Dysarthria [Unknown]
  - Thinking abnormal [Unknown]
  - Amnesia [Recovered/Resolved]

NARRATIVE: CASE EVENT DATE: 20210901
